FAERS Safety Report 23885250 (Version 1)
Quarter: 2024Q2

REPORT INFORMATION
  Report Type: Spontaneous
  Country: CH (occurrence: CH)
  Receive Date: 20240522
  Receipt Date: 20240522
  Transmission Date: 20240716
  Serious: Yes (Other)
  Sender: FDA-Public Use
  Company Number: None

PATIENT
  Age: 35 Year
  Sex: Female
  Weight: 66.2 kg

DRUGS (28)
  1. TOPAMAX [Suspect]
     Active Substance: TOPIRAMATE
     Indication: Epilepsy
     Route: 048
     Dates: start: 20240229, end: 20240319
  2. TOPAMAX [Suspect]
     Active Substance: TOPIRAMATE
     Indication: Epilepsy
     Route: 048
     Dates: start: 20240402
  3. VORICONAZOLE [Suspect]
     Active Substance: VORICONAZOLE
     Indication: Bronchopulmonary aspergillosis
     Route: 065
     Dates: start: 20240208, end: 20240227
  4. OXCARBAZEPINE [Concomitant]
     Active Substance: OXCARBAZEPINE
     Route: 048
     Dates: start: 20240311, end: 20240413
  5. LEVETIRACETAM [Concomitant]
     Active Substance: LEVETIRACETAM
     Route: 048
     Dates: start: 20240212, end: 20240326
  6. LEVETIRACETAM [Concomitant]
     Active Substance: LEVETIRACETAM
     Route: 048
     Dates: start: 20240326
  7. MEROPENEM [Concomitant]
     Active Substance: MEROPENEM
     Route: 042
     Dates: start: 20240222, end: 20240226
  8. MEROPENEM [Concomitant]
     Active Substance: MEROPENEM
     Route: 042
     Dates: start: 20240410
  9. RIVOTRIL [Concomitant]
     Active Substance: CLONAZEPAM
     Dates: start: 20240229, end: 20240307
  10. LACOSAMIDE [Concomitant]
     Active Substance: LACOSAMIDE
     Dates: start: 20240228, end: 20240311
  11. CRESEMBA [Concomitant]
     Active Substance: ISAVUCONAZONIUM SULFATE
     Dates: start: 20240227
  12. VANCOMYCIN [Concomitant]
     Active Substance: VANCOMYCIN
     Dates: start: 20240203, end: 20240206
  13. VANCOMYCIN [Concomitant]
     Active Substance: VANCOMYCIN
     Dates: start: 20240222, end: 20240223
  14. AMANTADINE SULFATE [Concomitant]
     Active Substance: AMANTADINE SULFATE
     Dates: start: 20240406
  15. PRONTOLAX [BISACODYL] [Concomitant]
     Dosage: AS NECESSARY
     Route: 054
  16. DEXPANTHENOL [Concomitant]
     Active Substance: DEXPANTHENOL
     Dosage: 50 MG/ML
     Route: 055
  17. ENOXAPARIN SODIUM [Concomitant]
     Active Substance: ENOXAPARIN SODIUM
     Route: 058
  18. ESOMEPRAZOLE SODIUM [Concomitant]
     Active Substance: ESOMEPRAZOLE SODIUM
     Route: 048
  19. ATROVENT [Concomitant]
     Active Substance: IPRATROPIUM BROMIDE
     Dosage: 0.25MG/2ML
     Route: 055
  20. METAMIZOLE [Concomitant]
     Active Substance: METAMIZOLE
     Route: 048
     Dates: start: 20240321
  21. METOPROLOL SUCCINATE [Concomitant]
     Active Substance: METOPROLOL SUCCINATE
     Route: 048
  22. MIDAZOLAM [Concomitant]
     Active Substance: MIDAZOLAM
     Dosage: AS NECESSARY
     Route: 045
  23. SODIUM PICOSULFATE [Concomitant]
     Active Substance: SODIUM PICOSULFATE
     Dosage: AS NECESSARY
     Route: 048
  24. ONDANSETRON [Concomitant]
     Active Substance: ONDANSETRON
     Dosage: AS NECESSARY
  25. OXYCODONE HYDROCHLORIDE [Concomitant]
     Active Substance: OXYCODONE HYDROCHLORIDE
     Dosage: 10 MG/ML ; AS NECESSARY
  26. DAFALGAN [Concomitant]
     Active Substance: ACETAMINOPHEN
     Route: 048
  27. VITAMIN A BLACHE [RETINOL] [Concomitant]
     Route: 047
  28. SALBUTAMOL-RATIOPHARM N [Concomitant]
     Route: 055

REACTIONS (1)
  - Pyrexia [Recovering/Resolving]

NARRATIVE: CASE EVENT DATE: 20240101
